FAERS Safety Report 5056192-7 (Version None)
Quarter: 2006Q3

REPORT INFORMATION
  Report Type: 
  Country: None (occurrence: None)
  Receive Date: 20060720
  Receipt Date: 20060711
  Transmission Date: 20061208
  Serious: Yes (Hospitalization, Disabling)
  Sender: FDA-Public Use
  Company Number: IT-AVENTIS-200617213GDDC

PATIENT
  Age: 70 Year
  Sex: Male

DRUGS (2)
  1. TAXOTERE [Suspect]
     Indication: PROSTATE CANCER
     Route: 042
  2. UNKNOWN DRUG [Concomitant]

REACTIONS (7)
  - DERMATITIS BULLOUS [None]
  - EPILEPSY [None]
  - HAEMORRHAGE [None]
  - MUCOSAL INFLAMMATION [None]
  - NEUTROPENIA [None]
  - ONYCHOLYSIS [None]
  - THROMBOCYTOPENIA [None]
